FAERS Safety Report 5724566-4 (Version None)
Quarter: 2008Q2

REPORT INFORMATION
  Report Type: 
  Country: None (occurrence: None)
  Receive Date: 20080428
  Receipt Date: 20070928
  Transmission Date: 20081010
  Serious: Yes (Other)
  Sender: FDA-Public Use
  Company Number: 78082

PATIENT
  Age: 60 Year
  Sex: Male

DRUGS (7)
  1. ALVESCO [Suspect]
     Indication: ASTHMA
     Dosage: 1 DAY 160 UG INHALATION
     Route: 055
     Dates: start: 20070609
  2. ITRACONAZOLE [Concomitant]
  3. PREDNISONE TAB [Concomitant]
  4. CALCIUM CARBONATE COLECALCIFEROL [Concomitant]
  5. ESOMEPRAZOLE [Concomitant]
  6. NITRAZEPAM [Concomitant]
  7. AMBROXIL HYDROCHLORIDE [Concomitant]

REACTIONS (1)
  - CUSHING'S SYNDROME [None]
